FAERS Safety Report 4997318-0 (Version None)
Quarter: 2006Q1

REPORT INFORMATION
  Report Type: 
  Country: None (occurrence: None)
  Receive Date: 20060315
  Receipt Date: 20060102
  Transmission Date: 20060701
  Serious: Yes (Other)
  Sender: FDA-Public Use
  Company Number: 430558

PATIENT
  Age: 85 Year
  Sex: Female

DRUGS (3)
  1. BONIVA [Suspect]
     Indication: DRUG USE FOR UNKNOWN INDICATION
     Dates: start: 20051215
  2. LIPITOR [Concomitant]
  3. L-THYROXINE (LEVOTHYROXINE) [Concomitant]

REACTIONS (1)
  - ALOPECIA [None]
